FAERS Safety Report 4649287-0 (Version None)
Quarter: 2005Q2

REPORT INFORMATION
  Report Type: 
  Country: None (occurrence: None)
  Receive Date: 20050429
  Receipt Date: 20041222
  Transmission Date: 20051028
  Serious: Yes (Hospitalization, Disabling)
  Sender: FDA-Public Use
  Company Number: US-MERCK-0412USA02769

PATIENT
  Age: 78 Year
  Sex: Male

DRUGS (2)
  1. VIOXX [Suspect]
     Indication: ARTHRITIS
     Route: 048
     Dates: start: 20011106
  2. VIOXX [Suspect]
     Route: 048
     Dates: start: 20000401

REACTIONS (4)
  - CEREBROVASCULAR ACCIDENT [None]
  - COLONIC POLYP [None]
  - PAIN [None]
  - POLYP [None]
